FAERS Safety Report 24777882 (Version 1)
Quarter: 2024Q4

REPORT INFORMATION
  Report Type: Spontaneous
  Country: US (occurrence: US)
  Receive Date: 20241226
  Receipt Date: 20241226
  Transmission Date: 20250115
  Serious: No
  Sender: PFIZER
  Company Number: US-PFIZER INC-PV202400167219

PATIENT
  Age: 44 Year
  Sex: Female

DRUGS (2)
  1. BRAFTOVI [Suspect]
     Active Substance: ENCORAFENIB
     Indication: Malignant melanoma in situ
     Dosage: 300 MG (TAKE 4 CAPSULES BY MOUTH DAILY, 14 DAYS ON FOLLOWED BY 7 DAYS OFF FOR TOLERANCE)
     Route: 048
  2. BRAFTOVI [Suspect]
     Active Substance: ENCORAFENIB
     Indication: Malignant melanoma

REACTIONS (2)
  - Drug intolerance [Unknown]
  - Off label use [Unknown]
